FAERS Safety Report 5630821-9 (Version None)
Quarter: 2008Q1

REPORT INFORMATION
  Report Type: 
  Country: None (occurrence: None)
  Receive Date: 20080219
  Receipt Date: 20080205
  Transmission Date: 20080703
  Serious: Yes (Hospitalization, Disabling, Other)
  Sender: FDA-Public Use
  Company Number: GB-RANBAXY-2008RR-12674

PATIENT

DRUGS (9)
  1. SIMVASTATIN [Suspect]
     Indication: CARDIAC DISORDER
     Dosage: 40 MG, QD
     Route: 048
     Dates: end: 20071018
  2. FUSIDIC ACID [Suspect]
     Indication: ARTHRITIS BACTERIAL
     Dosage: 500 MG, TID
     Route: 048
     Dates: start: 20070914, end: 20071022
  3. ASPIRIN [Concomitant]
     Indication: CARDIAC DISORDER
     Dosage: 75 MG, QD
     Route: 048
  4. CLINDAMYCIN HCL [Concomitant]
     Indication: ARTHRITIS BACTERIAL
     Dosage: 300 MG, QID
     Route: 048
     Dates: start: 20070914, end: 20071027
  5. CO-CODAMOL [Concomitant]
     Dosage: UNK
     Route: 048
  6. DOXAZOSIN 2MG TABLETS [Concomitant]
     Dosage: 2 MG, QD
     Route: 048
     Dates: end: 20071001
  7. FOLIC ACID TABLETS BP 5MG [Concomitant]
     Dosage: 5 MG, 1/WEEK
     Route: 048
     Dates: end: 20071027
  8. METHOTREXATE [Concomitant]
     Dosage: 1 DF, 1/WEEK
     Route: 058
     Dates: end: 20071001
  9. RAMIPRIL 5 MG CAPSULES [Concomitant]
     Indication: CARDIAC DISORDER
     Dosage: 5 MG, BID
     Route: 048

REACTIONS (4)
  - DRUG INTERACTION [None]
  - LIVER FUNCTION TEST ABNORMAL [None]
  - MUSCULAR WEAKNESS [None]
  - MYOPATHY [None]
